FAERS Safety Report 17591283 (Version 6)
Quarter: 2022Q1

REPORT INFORMATION
  Report Type: Report from Study
  Country: FR (occurrence: None)
  Receive Date: 20200327
  Receipt Date: 20220317
  Transmission Date: 20220423
  Serious: Yes (Life-Threatening, Hospitalization)
  Sender: FDA-Public Use
  Company Number: FR-EISAI MEDICAL RESEARCH-EC-2020-072331

PATIENT
  Age: 86 Year
  Sex: Male
  Weight: 83 kg

DRUGS (9)
  1. LENVATINIB [Suspect]
     Active Substance: LENVATINIB
     Indication: Malignant melanoma stage III
     Route: 048
     Dates: start: 20191206, end: 20200308
  2. LENVATINIB [Suspect]
     Active Substance: LENVATINIB
     Indication: Malignant melanoma stage IV
  3. PEMBROLIZUMAB [Suspect]
     Active Substance: PEMBROLIZUMAB
     Indication: Malignant melanoma stage III
     Route: 041
     Dates: start: 20191206, end: 20200207
  4. PEMBROLIZUMAB [Suspect]
     Active Substance: PEMBROLIZUMAB
     Indication: Malignant melanoma stage IV
     Route: 041
     Dates: start: 20200228, end: 20200228
  5. PRAZOSIN [Concomitant]
     Active Substance: PRAZOSIN
     Dates: start: 201911
  6. LERCANIDIPINE [Concomitant]
     Active Substance: LERCANIDIPINE
     Dates: start: 201911
  7. NEBIVOLOL [Concomitant]
     Active Substance: NEBIVOLOL
     Dates: start: 201911
  8. INDAPAMIDE\PERINDOPRIL [Concomitant]
     Active Substance: INDAPAMIDE\PERINDOPRIL
     Dates: start: 201911
  9. NERISONE [Concomitant]
     Active Substance: DIFLUCORTOLONE VALERATE
     Dates: start: 20200110, end: 202003

REACTIONS (3)
  - Diarrhoea [Recovered/Resolved]
  - Hypovolaemic shock [Recovered/Resolved]
  - Acute kidney injury [Recovered/Resolved]

NARRATIVE: CASE EVENT DATE: 20200301
